FAERS Safety Report 10285875 (Version 2)
Quarter: 2015Q1

REPORT INFORMATION
  Report Type: Spontaneous
  Country: US (occurrence: None)
  Receive Date: 20140703
  Receipt Date: 20150219
  Transmission Date: 20150720
  Serious: Yes (Hospitalization, Other)
  Sender: FDA-Public Use
  Company Number: UNT-2014-002011

PATIENT
  Age: 44 Year
  Sex: Female
  Weight: 73.2 kg

DRUGS (37)
  1. HEPARIN [Concomitant]
     Active Substance: HEPARIN SODIUM
  2. ACETAMINOPHEN (PARACETAMOL) [Concomitant]
     Active Substance: ACETAMINOPHEN
  3. DIPHENHYDRAMINE (DIPHENHYDRAMINE) [Concomitant]
     Active Substance: DIPHENHYDRAMINE
  4. LINZESS [Concomitant]
     Active Substance: LINACLOTIDE
  5. ONDANSETRON. [Concomitant]
     Active Substance: ONDANSETRON
  6. TORSEMIDE (TORASEMIDE) [Concomitant]
  7. GABAPENTIN (GABAPENTIN) [Concomitant]
     Active Substance: GABAPENTIN
  8. ALLOPURINOL (ALLOPURINOL) [Concomitant]
     Active Substance: ALLOPURINOL
  9. MAGAL (ALUMINUM HYDROXYDE, MAGNESIUM HYDROXIDE, SIMETICONE) [Concomitant]
  10. NASADROPS (SODIUM BICARBONATE) [Concomitant]
  11. METOLAZONE (METOLAZONE) [Concomitant]
  12. MAGNESIUM CHLORIDE (MAGNESIUM CHLORIDE) [Concomitant]
  13. POTASSIUM CHLORIDE (POTASSIUM CHLORIDE) [Concomitant]
     Active Substance: POTASSIUM CHLORIDE
  14. CYCLOBENZAPRINE (CYCLOBENZAPRINE) [Concomitant]
     Active Substance: CYCLOBENZAPRINE
  15. METHADONE [Concomitant]
     Active Substance: METHADONE HYDROCHLORIDE
  16. VENLAFAXINE [Concomitant]
     Active Substance: VENLAFAXINE HYDROCHLORIDE
  17. VITAMIN B COMPLEX W VITAMIN C + FOLIC ACID (ASCORBIC ACID, CALCIUM PANTOTHENATE, CYANOCOBALAMIN, FOLIC ACID, NICOTINAMIDE, PYRIDOXINE HYDROCHLORIDE, RIBOFLAVIN, THIAMINE HYDROCHLORIDE) [Concomitant]
  18. CLONAZEPAM (CLONAZEPAM) [Concomitant]
     Active Substance: CLONAZEPAM
  19. EUCERIN (SALICYLIC ACID) [Concomitant]
  20. HYDROMORPHONE (HYDROMORPHONE) [Concomitant]
     Active Substance: HYDROMORPHONE
  21. LIDOCAINE (LIDOCAINE) [Concomitant]
     Active Substance: LIDOCAINE
  22. COUMADIN (WARFARIN SODIUIM) [Concomitant]
  23. OMEPRAZOLE (OMEPRAZOLE) [Concomitant]
     Active Substance: OMEPRAZOLE
  24. COLCHICINE (COLCHICINE) [Concomitant]
     Active Substance: COLCHICINE
  25. LACTULOSE (LACTULOSE) [Concomitant]
     Active Substance: LACTULOSE
  26. SILDENAFIL (SILDENAFIL) [Concomitant]
     Active Substance: SILDENAFIL
  27. CHLORASEPTIC (PHENOL) [Concomitant]
  28. NALOXONE (NALOXONE) [Concomitant]
  29. REMODULIN [Suspect]
     Active Substance: TREPROSTINIL
     Indication: COR PULMONALE CHRONIC
     Route: 042
     Dates: start: 20120428
  30. BISACODYL (BISACODYL) [Concomitant]
     Active Substance: BISACODYL
  31. TRACLEER [Concomitant]
     Active Substance: BOSENTAN\BOSENTAN MONOHYDRATE
  32. DOCUSATE W/SENNA (DOCUSATE, SENNA ALEXANDRINA) [Concomitant]
  33. PANTOPRAZOLE (PANTOPRAZOLE) [Concomitant]
     Active Substance: PANTOPRAZOLE SODIUM
  34. SODIUM CHLORIDE (SODIUM CHLORIDE) [Concomitant]
     Active Substance: SODIUM CHLORIDE
  35. METHYLNAL TREXONE (METHYLNALTREXONE) [Concomitant]
  36. SPIRONOLACTONE (SPIRONOLACTONE) [Concomitant]
     Active Substance: SPIRONOLACTONE
  37. PERCOCET (OXYCODONE HYDROCHLORIDE, OXYCODONE TEREPHTHALATE, PARACETMOL) [Concomitant]

REACTIONS (16)
  - Pancytopenia [None]
  - Belligerence [None]
  - Renal failure [None]
  - Clostridium difficile infection [None]
  - Haemodialysis [None]
  - Drug dependence [None]
  - Skin ulcer [None]
  - Personality disorder [None]
  - Acute kidney injury [None]
  - Blood sodium decreased [None]
  - Agitation [None]
  - Right ventricular failure [None]
  - Fluid overload [None]
  - Pain [None]
  - Decreased appetite [None]
  - Hypotension [None]

NARRATIVE: CASE EVENT DATE: 20140604
